FAERS Safety Report 9569094 (Version 1)
Quarter: 2013Q3

REPORT INFORMATION
  Report Type: Spontaneous
  Country: US (occurrence: US)
  Receive Date: 20130930
  Receipt Date: 20130930
  Transmission Date: 20140515
  Serious: No
  Sender: FDA-Public Use
  Company Number: US-AMGEN-USASP2013059597

PATIENT
  Age: 39 Year
  Sex: Female

DRUGS (3)
  1. ENBREL [Suspect]
     Indication: PSORIATIC ARTHROPATHY
     Dosage: UNK,MG,2 TIMES/WK
     Route: 065
     Dates: start: 2008
  2. PLAQUENIL                          /00072602/ [Concomitant]
     Dosage: UNK, MG DAILY
  3. METHOTREXATE [Concomitant]
     Dosage: UNK

REACTIONS (2)
  - Skin odour abnormal [Recovered/Resolved]
  - Drug effect incomplete [Not Recovered/Not Resolved]
